FAERS Safety Report 20728279 (Version 3)
Quarter: 2022Q2

REPORT INFORMATION
  Report Type: Spontaneous
  Country: US (occurrence: US)
  Receive Date: 20220420
  Receipt Date: 20220519
  Transmission Date: 20220721
  Serious: Yes (Death, Life-Threatening, Hospitalization, Other)
  Sender: FDA-Public Use
  Company Number: US-UNITED THERAPEUTICS-UNT-2022-000299

PATIENT
  Sex: Male
  Weight: 108.84 kg

DRUGS (4)
  1. TYVASO [Suspect]
     Active Substance: TREPROSTINIL
     Indication: Pulmonary arterial hypertension
     Dosage: UNK
     Dates: start: 20210826
  2. TYVASO [Suspect]
     Active Substance: TREPROSTINIL
     Dosage: 18-72 ?G, QID
     Dates: end: 20211102
  3. OFEV [Concomitant]
     Active Substance: NINTEDANIB
     Indication: Idiopathic pulmonary fibrosis
     Dosage: 150 MG, Q12H
     Route: 048
     Dates: start: 20201028, end: 20220103
  4. AMLODIPINE [Concomitant]
     Active Substance: AMLODIPINE BESYLATE
     Indication: Product used for unknown indication
     Dosage: UNK
     Route: 065

REACTIONS (8)
  - Acute respiratory failure [Fatal]
  - Interstitial lung disease [Fatal]
  - Fall [Fatal]
  - Obstructive sleep apnoea syndrome [Unknown]
  - Pneumonia [Not Recovered/Not Resolved]
  - Sepsis [Unknown]
  - Idiopathic pulmonary fibrosis [Unknown]
  - Cough [Unknown]

NARRATIVE: CASE EVENT DATE: 20210101
